FAERS Safety Report 13306066 (Version 4)
Quarter: 2017Q3

REPORT INFORMATION
  Report Type: Report from Study
  Country: JP (occurrence: JP)
  Receive Date: 20170308
  Receipt Date: 20170721
  Transmission Date: 20171127
  Serious: Yes (Other)
  Sender: FDA-Public Use
  Company Number: JP-PFIZER INC-2016492371

PATIENT
  Age: 52 Year
  Sex: Male
  Weight: 53 kg

DRUGS (8)
  1. CICLOSPORIN [Concomitant]
     Active Substance: CYCLOSPORINE
     Dosage: 100.8 MG, DAILY
     Route: 041
     Dates: start: 20160924, end: 20160926
  2. VFEND [Suspect]
     Active Substance: VORICONAZOLE
     Indication: ANTIFUNGAL PROPHYLAXIS
     Dosage: 200 MG, 2X/DAY
     Route: 048
     Dates: start: 20160914, end: 20161002
  3. CICLOSPORIN [Concomitant]
     Active Substance: CYCLOSPORINE
     Dosage: 152.6 MG, DAILY
     Route: 041
     Dates: start: 20160926, end: 20161110
  4. DENOSINE [Suspect]
     Active Substance: GANCICLOVIR
     Indication: CYTOMEGALOVIRUS VIRAEMIA
     Dosage: UNK
     Route: 041
     Dates: start: 20161009, end: 20161016
  5. CICLOSPORIN [Concomitant]
     Active Substance: CYCLOSPORINE
     Indication: PROPHYLAXIS AGAINST GRAFT VERSUS HOST DISEASE
     Dosage: 75.6 MG, DAILY
     Route: 041
     Dates: start: 20160922, end: 20160924
  6. TAZOPIP [Suspect]
     Active Substance: PIPERACETAZINE\TAZOBACTAM
     Indication: FEBRILE NEUTROPENIA
     Dosage: UNK
     Route: 041
     Dates: start: 20161009, end: 20161016
  7. VFEND [Suspect]
     Active Substance: VORICONAZOLE
     Dosage: 300 MG, 2X/DAY
     Route: 048
     Dates: start: 20161003, end: 20161016
  8. VANCOMYCIN HCL [Suspect]
     Active Substance: VANCOMYCIN HYDROCHLORIDE
     Indication: FEBRILE NEUTROPENIA
     Dosage: UNK
     Route: 041
     Dates: start: 20161003, end: 20161016

REACTIONS (2)
  - Hepatic function abnormal [Recovered/Resolved]
  - Blood alkaline phosphatase increased [Unknown]

NARRATIVE: CASE EVENT DATE: 20161013
